FAERS Safety Report 10515235 (Version 1)
Quarter: 2014Q4

REPORT INFORMATION
  Report Type: Spontaneous
  Country: PL (occurrence: PL)
  Receive Date: 20141014
  Receipt Date: 20141014
  Transmission Date: 20150528
  Serious: Yes (Life-Threatening, Hospitalization)
  Sender: FDA-Public Use
  Company Number: PL-AMGEN-POLSP2014078541

PATIENT
  Age: 57 Year
  Sex: Male
  Weight: 54 kg

DRUGS (4)
  1. METOTREKSAT EBEWE [Concomitant]
     Dosage: UNK
     Dates: start: 2005
  2. ENCORTON                           /00044701/ [Concomitant]
     Dosage: UNK
     Dates: start: 2005
  3. ENBREL [Suspect]
     Active Substance: ETANERCEPT
     Indication: ANKYLOSING SPONDYLITIS
     Dosage: 50 MG, UNK
     Route: 065
     Dates: start: 20091208, end: 20140325
  4. TRAMADOL [Concomitant]
     Active Substance: TRAMADOL
     Dosage: UNK
     Dates: start: 2008

REACTIONS (1)
  - Pharyngeal cancer [Unknown]

NARRATIVE: CASE EVENT DATE: 20140325
